FAERS Safety Report 17148816 (Version 2)
Quarter: 2021Q4

REPORT INFORMATION
  Report Type: Spontaneous
  Country: US (occurrence: US)
  Receive Date: 20191213
  Receipt Date: 20211129
  Transmission Date: 20220303
  Serious: No
  Sender: FDA-Public Use
  Company Number: US-UCBSA-2015036083

PATIENT
  Age: 41 Year
  Sex: Female

DRUGS (8)
  1. VIMPAT [Suspect]
     Active Substance: LACOSAMIDE
     Indication: Epilepsy
     Dosage: 8 YEARS AGO
     Route: 048
  2. VIMPAT [Suspect]
     Active Substance: LACOSAMIDE
     Dosage: STARTED 2 YEARS AGO, 200 MG, 2X/DAY (BID)
     Route: 048
  3. VIMPAT [Suspect]
     Active Substance: LACOSAMIDE
     Dosage: ABOUT A YEAR AGO, 250 MG, 2X/DAY (BID)
     Route: 048
  4. BRIVARACETAM [Suspect]
     Active Substance: BRIVARACETAM
     Indication: Epilepsy
     Dosage: 8 YEARS AGO, 2 PILLS AT AM, 2 PILLS AT PM
     Route: 048
  5. LAMICTAL [Concomitant]
     Active Substance: LAMOTRIGINE
     Indication: Product used for unknown indication
     Dosage: 100 MG AM, 200 (UNSPECIFIED UNIT) PM
  6. ONFI [Concomitant]
     Active Substance: CLOBAZAM
     Indication: Product used for unknown indication
     Dosage: 10 MG, 2X/DAY (BID)
  7. CELEXA [Concomitant]
     Active Substance: CITALOPRAM HYDROBROMIDE
     Indication: Depression
     Dosage: UNK
  8. PROVERA [Concomitant]
     Active Substance: MEDROXYPROGESTERONE ACETATE
     Indication: Product used for unknown indication

REACTIONS (5)
  - Joint dislocation [Unknown]
  - Seizure [Unknown]
  - Headache [Unknown]
  - Focal dyscognitive seizures [Unknown]
  - Weight decreased [Unknown]

NARRATIVE: CASE EVENT DATE: 20141101
